FAERS Safety Report 8494178 (Version 2)
Quarter: 2012Q4

REPORT INFORMATION
  Report Type: 
  Country: JP (occurrence: JP)
  Receive Date: 20120404
  Receipt Date: 20120910
  Transmission Date: 20130627
  Serious: Yes (Hospitalization)
  Sender: FDA-Public Use
  Company Number: JP-GLAXOSMITHKLINE-B0645360A

PATIENT
  Age: 59 Year
  Sex: Male

DRUGS (1)
  1. VALTREX [Suspect]
     Indication: VARICELLA
     Dosage: 1000MG Three times per day
     Route: 048
     Dates: start: 20100330, end: 20100401

REACTIONS (9)
  - Encephalopathy [Recovered/Resolved]
  - Renal impairment [Recovering/Resolving]
  - Disorientation [Recovered/Resolved]
  - Speech disorder [Recovered/Resolved]
  - Altered state of consciousness [Recovered/Resolved]
  - Akinesia [Recovered/Resolved]
  - Unresponsive to stimuli [Recovered/Resolved]
  - Blood creatinine increased [Recovering/Resolving]
  - Blood urea increased [Recovering/Resolving]
